FAERS Safety Report 5443083-2 (Version None)
Quarter: 2007Q3

REPORT INFORMATION
  Report Type: 
  Country: None (occurrence: None)
  Receive Date: 20070905
  Receipt Date: 20070829
  Transmission Date: 20080115
  Serious: Yes (Hospitalization)
  Sender: FDA-Public Use
  Company Number: FR-BRISTOL-MYERS SQUIBB COMPANY-13870688

PATIENT
  Age: 66 Year
  Sex: Male

DRUGS (6)
  1. VASTEN TABS 40 MG [Suspect]
     Indication: HYPERCHOLESTEROLAEMIA
     Dosage: THERAPY DURATION - FEW YEARS.
     Route: 048
     Dates: end: 20070802
  2. VASTEN TABS 40 MG [Suspect]
     Indication: ISCHAEMIC HEART DISEASE PROPHYLAXIS
     Dosage: THERAPY DURATION - FEW YEARS.
     Route: 048
     Dates: end: 20070802
  3. CELIPROLOL [Concomitant]
     Indication: MYOCARDIAL INFARCTION
     Route: 048
  4. LASIX [Concomitant]
     Indication: MYOCARDIAL INFARCTION
     Route: 048
  5. PREVISCAN [Concomitant]
     Indication: ATRIAL FIBRILLATION
     Route: 048
  6. LISINOPRIL [Concomitant]
     Indication: MYOCARDIAL INFARCTION
     Route: 048

REACTIONS (7)
  - ALANINE AMINOTRANSFERASE INCREASED [None]
  - ASPARTATE AMINOTRANSFERASE INCREASED [None]
  - BLOOD CREATINE PHOSPHOKINASE INCREASED [None]
  - CYTOLYTIC HEPATITIS [None]
  - FIBRIN INCREASED [None]
  - HEPATOCELLULAR DAMAGE [None]
  - MYALGIA [None]
